FAERS Safety Report 18538153 (Version 2)
Quarter: 2021Q1

REPORT INFORMATION
  Report Type: Spontaneous
  Country: US (occurrence: US)
  Receive Date: 20201124
  Receipt Date: 20210114
  Transmission Date: 20210419
  Serious: Yes (Other)
  Sender: FDA-Public Use
  Company Number: US-TEVA-2020-US-1850572

PATIENT
  Sex: Male

DRUGS (1)
  1. NEFAZODONE TEVA [Suspect]
     Active Substance: NEFAZODONE
     Indication: DEPRESSION
     Dosage: START DATE: FOR OVER 20 YEARS, DOSE: SPLITTING THE TABLETS AND TAKES 125 MG TWICE A DAY
     Route: 065

REACTIONS (5)
  - Wrong technique in product usage process [Unknown]
  - Suicidal behaviour [Unknown]
  - Withdrawal syndrome [Unknown]
  - Incorrect dose administered [Unknown]
  - Inability to afford medication [Unknown]
